FAERS Safety Report 9220147 (Version 1)
Quarter: 2013Q2

REPORT INFORMATION
  Report Type: Spontaneous
  Country: US (occurrence: None)
  Receive Date: 20130408
  Receipt Date: 20130408
  Transmission Date: 20140414
  Serious: Yes (Hospitalization)
  Sender: FDA-Public Use
  Company Number: None

PATIENT
  Age: 28 Year
  Sex: Male
  Weight: 81.7 kg

DRUGS (6)
  1. VANCOMYCIN [Suspect]
     Indication: CELLULITIS
     Route: 042
     Dates: start: 20130118, end: 20130120
  2. PANTOPRAZOLE [Concomitant]
  3. KETOROLAC [Concomitant]
  4. PIPERACILLIN/TAZOBACTAM [Concomitant]
  5. HEPARIN [Concomitant]
  6. DILAUDID [Concomitant]

REACTIONS (2)
  - Renal tubular necrosis [None]
  - Dialysis [None]
